FAERS Safety Report 14500163 (Version 1)
Quarter: 2018Q1

REPORT INFORMATION
  Report Type: Not Available
  Country: US (occurrence: US)
  Receive Date: 20180207
  Receipt Date: 20180207
  Transmission Date: 20180509
  Serious: No
  Sender: FDA-Public Use
  Company Number: US-FOUNDATIONCONSUMERHC-2017-US-014916

PATIENT
  Age: 38 Year
  Sex: Female
  Weight: 74.84 kg

DRUGS (3)
  1. ABILIFY [Concomitant]
     Active Substance: ARIPIPRAZOLE
  2. PLAN B ONE-STEP [Suspect]
     Active Substance: LEVONORGESTREL
     Dosage: 1 TAB PO ON 11/7 AND 1 TAB PO ON 11/18 OR 11/19
     Route: 048
     Dates: start: 20171118, end: 20171118
  3. PLAN B ONE-STEP [Suspect]
     Active Substance: LEVONORGESTREL
     Dosage: 1 TAB PO ON 11/7 AND 1 TAB PO ON 11/18 OR 11/19
     Route: 048
     Dates: start: 20171107, end: 20171107

REACTIONS (5)
  - Dysmenorrhoea [Unknown]
  - Menstrual disorder [Unknown]
  - Nipple pain [Unknown]
  - Nausea [Unknown]
  - Nipple disorder [Unknown]

NARRATIVE: CASE EVENT DATE: 20171107
